FAERS Safety Report 7352216-2 (Version None)
Quarter: 2011Q1

REPORT INFORMATION
  Report Type: 
  Country: None (occurrence: None)
  Receive Date: 20110304
  Receipt Date: 20110219
  Transmission Date: 20110831
  Serious: Yes (Other)
  Sender: FDA-Public Use
  Company Number: 1000019056

PATIENT
  Age: 22 Year
  Sex: Male

DRUGS (2)
  1. CITALOPRAM HYDROBROMIDE [Suspect]
     Dosage: (60 MG,ONCE), ORAL
     Route: 048
     Dates: start: 20110219, end: 20110219
  2. AMITRIPTYLINE HCL [Suspect]
     Dosage: (ONCE), ORAL
     Route: 048
     Dates: start: 20110219, end: 20110219

REACTIONS (3)
  - DYSARTHRIA [None]
  - INTENTIONAL OVERDOSE [None]
  - SUICIDE ATTEMPT [None]
